FAERS Safety Report 18862988 (Version 1)
Quarter: 2021Q1

REPORT INFORMATION
  Report Type: Report from Study
  Country: None (occurrence: BR)
  Receive Date: 20210209
  Receipt Date: 20210209
  Transmission Date: 20210420
  Serious: Yes (Hospitalization, Disabling)
  Sender: FDA-Public Use
  Company Number: BR-ABBVIE-21K-020-3763128-00

PATIENT
  Age: 69 Year
  Sex: Male
  Weight: 82 kg

DRUGS (2)
  1. HUMIRA [Suspect]
     Active Substance: ADALIMUMAB
     Indication: ANKYLOSING SPONDYLITIS
     Route: 058
     Dates: start: 20130901
  2. CIMECORT [Concomitant]
     Active Substance: BETAMETHASONE\KETOCONAZOLE\NEOMYCIN
     Indication: LUNG DISORDER
     Route: 055

REACTIONS (9)
  - Haemoptysis [Not Recovered/Not Resolved]
  - Malaise [Unknown]
  - Oxygen saturation abnormal [Unknown]
  - Lung disorder [Not Recovered/Not Resolved]
  - Intentional product misuse [Unknown]
  - Pain in extremity [Not Recovered/Not Resolved]
  - Aphonia [Recovering/Resolving]
  - COVID-19 [Not Recovered/Not Resolved]
  - Pneumonia [Recovered/Resolved]

NARRATIVE: CASE EVENT DATE: 2018
